FAERS Safety Report 19744958 (Version 1)
Quarter: 2021Q3

REPORT INFORMATION
  Report Type: Spontaneous
  Country: US (occurrence: US)
  Receive Date: 20210824
  Receipt Date: 20210824
  Transmission Date: 20211014
  Serious: Yes (Life-Threatening, Other)
  Sender: FDA-Public Use
  Company Number: None

PATIENT
  Age: 43 Year
  Sex: Female
  Weight: 76.5 kg

DRUGS (4)
  1. CONTRAVE [Suspect]
     Active Substance: BUPROPION HYDROCHLORIDE\NALTREXONE HYDROCHLORIDE
     Indication: WEIGHT DECREASED
     Dosage: ?          QUANTITY:120 TABLET(S);?
     Route: 048
     Dates: start: 20210812, end: 20210823
  2. FISH OIL PILLS [Concomitant]
  3. PROBIOTIC [Concomitant]
     Active Substance: PROBIOTICS NOS
  4. OTC MULTIVITAMIN [Concomitant]

REACTIONS (7)
  - Chest pain [None]
  - Dyspnoea [None]
  - Insomnia [None]
  - Anxiety [None]
  - Blood pressure increased [None]
  - Heart rate increased [None]
  - Neck pain [None]

NARRATIVE: CASE EVENT DATE: 20210823
